FAERS Safety Report 24257932 (Version 1)
Quarter: 2024Q3

REPORT INFORMATION
  Report Type: Spontaneous
  Country: IN (occurrence: IN)
  Receive Date: 20240828
  Receipt Date: 20240828
  Transmission Date: 20241017
  Serious: Yes (Hospitalization, Other)
  Sender: CIPLA
  Company Number: IN-CIPLA LTD.-2024IN09272

PATIENT

DRUGS (4)
  1. TESTOSTERONE [Suspect]
     Active Substance: TESTOSTERONE
     Indication: Supplementation therapy
     Dosage: UNK, INJECTION FOR 4 MONTHS
     Route: 065
  2. NANDROLONE DECANOATE [Suspect]
     Active Substance: NANDROLONE DECANOATE
     Indication: Supplementation therapy
     Dosage: UNK, INJECTION FOR 2 MONTHS
     Route: 065
  3. VOSILASARM [Suspect]
     Active Substance: VOSILASARM
     Indication: Supplementation therapy
     Dosage: UNK
     Route: 065
  4. IBUTAMOREN [Suspect]
     Active Substance: IBUTAMOREN
     Indication: Supplementation therapy
     Dosage: UNK, TABLETS FOR 5 MONTHS
     Route: 065

REACTIONS (1)
  - Drug-induced liver injury [Recovering/Resolving]
